FAERS Safety Report 6087363-9 (Version None)
Quarter: 2009Q1

REPORT INFORMATION
  Report Type: 
  Country: None (occurrence: None)
  Receive Date: 20090223
  Receipt Date: 20090210
  Transmission Date: 20090719
  Serious: Yes (Death)
  Sender: FDA-Public Use
  Company Number: B0559705A

PATIENT
  Age: 64 Year
  Sex: Male

DRUGS (6)
  1. AVANDAMET [Suspect]
     Route: 048
     Dates: start: 20060725
  2. ZOCOR [Concomitant]
     Dosage: 20MG PER DAY
     Route: 048
  3. PLAVIX [Concomitant]
     Route: 048
  4. TRIATEC [Concomitant]
     Dosage: 10MG PER DAY
     Route: 048
  5. DAONIL [Concomitant]
     Dosage: 7.5MG PER DAY
     Route: 048
  6. METFORMIN HCL [Concomitant]
     Dosage: 2000MG PER DAY
     Route: 048

REACTIONS (1)
  - DEATH [None]
